FAERS Safety Report 8810360 (Version 2)
Quarter: 2013Q1

REPORT INFORMATION
  Report Type: Spontaneous
  Country: US (occurrence: US)
  Receive Date: 20120926
  Receipt Date: 20130123
  Transmission Date: 20140127
  Serious: No
  Sender: FDA-Public Use
  Company Number: US-009507513-1209USA005061

PATIENT
  Sex: Female

DRUGS (1)
  1. DULERA [Suspect]
     Dosage: UNK

REACTIONS (3)
  - Hypoxia [Unknown]
  - Cough [Unknown]
  - Product quality issue [Unknown]
